FAERS Safety Report 5764355-8 (Version None)
Quarter: 2008Q2

REPORT INFORMATION
  Report Type: 
  Country: None (occurrence: None)
  Receive Date: 20080610
  Receipt Date: 20071206
  Transmission Date: 20081010
  Serious: No
  Sender: FDA-Public Use
  Company Number: US-BOEHRINGER INGELHEIM GMBH, GERMANY-2007-BP-01611BP

PATIENT
  Sex: Female
  Weight: 73 kg

DRUGS (30)
  1. MIRAPEX [Suspect]
     Indication: RESTLESS LEGS SYNDROME
     Route: 048
     Dates: start: 20000724, end: 20060101
  2. TRAMADOL HCL [Concomitant]
     Indication: RESTLESS LEGS SYNDROME
  3. SINEMET [Concomitant]
     Indication: RESTLESS LEGS SYNDROME
  4. REQUIP [Concomitant]
  5. PREMARIN [Concomitant]
  6. XANAX [Concomitant]
  7. MULTIVITAMIN WITH IRON [Concomitant]
  8. ZOLOFT [Concomitant]
  9. PRILOSEC [Concomitant]
  10. PERMAX [Concomitant]
  11. ERYTHROMYCIN [Concomitant]
  12. ZITHROMAX [Concomitant]
  13. IBUROFEN [Concomitant]
  14. IMIPRAM TAB [Concomitant]
  15. DAYPRO [Concomitant]
  16. VEETIDS [Concomitant]
  17. INDOMETHACIN [Concomitant]
  18. PEG 3350 [Concomitant]
  19. LIPITOR [Concomitant]
     Indication: LOW DENSITY LIPOPROTEIN
     Dates: start: 20050624
  20. ESTROGEN [Concomitant]
  21. SINEMET CR [Concomitant]
  22. ALPRAZOLAM [Concomitant]
  23. CARB/LEVO [Concomitant]
     Dates: start: 20060313
  24. CLONAZEPAM [Concomitant]
     Dates: start: 20060318
  25. NEURONTIN [Concomitant]
  26. FERROUS SULFATE TAB [Concomitant]
     Dates: start: 20060731
  27. ULTRAM [Concomitant]
     Dates: start: 20060815
  28. DILANTIN [Concomitant]
  29. PHENYTOIN SODIUM [Concomitant]
  30. GABAPENTIN [Concomitant]

REACTIONS (6)
  - DEPRESSION [None]
  - HALLUCINATION [None]
  - HYPERPHAGIA [None]
  - OBSESSIVE-COMPULSIVE DISORDER [None]
  - PATHOLOGICAL GAMBLING [None]
  - WEIGHT INCREASED [None]
